FAERS Safety Report 23140289 (Version 2)
Quarter: 2023Q4

REPORT INFORMATION
  Report Type: Spontaneous
  Country: DE (occurrence: DE)
  Receive Date: 20231102
  Receipt Date: 20231213
  Transmission Date: 20240109
  Serious: Yes (Hospitalization, Other)
  Sender: FDA-Public Use
  Company Number: DE-SAMSUNG BIOEPIS-SB-2023-17634

PATIENT
  Age: 63 Year
  Sex: Male
  Weight: 100.7 kg

DRUGS (6)
  1. DOCETAXEL [Suspect]
     Active Substance: DOCETAXEL\DOCETAXEL ANHYDROUS
     Indication: Product used for unknown indication
     Dosage: 111 MG
     Route: 065
     Dates: start: 20230614
  2. FLUOROURACIL [Suspect]
     Active Substance: FLUOROURACIL
     Indication: Product used for unknown indication
     Dosage: 5770 MG
     Route: 065
     Dates: start: 20230614
  3. LEUCOVORIN [Suspect]
     Active Substance: LEUCOVORIN\LEUCOVORIN CALCIUM
     Indication: Product used for unknown indication
     Dosage: 444 MG
     Route: 065
     Dates: start: 20230614
  4. OXALIPLATIN [Suspect]
     Active Substance: OXALIPLATIN
     Indication: Product used for unknown indication
     Dosage: 188 MG
     Route: 065
     Dates: start: 20230614
  5. PEMBROLIZUMAB [Suspect]
     Active Substance: PEMBROLIZUMAB
     Indication: Product used for unknown indication
     Dosage: 200 DF
     Route: 065
     Dates: start: 20230614
  6. TRASTUZUMAB [Suspect]
     Active Substance: TRASTUZUMAB
     Indication: Product used for unknown indication
     Dosage: 835 MG
     Route: 065
     Dates: start: 20230614

REACTIONS (3)
  - Abdominal infection [Recovered/Resolved]
  - Hypotension [Unknown]
  - Leukopenia [Unknown]

NARRATIVE: CASE EVENT DATE: 20230624
